FAERS Safety Report 19277286 (Version 2)
Quarter: 2021Q2

REPORT INFORMATION
  Report Type: Spontaneous
  Country: US (occurrence: US)
  Receive Date: 20210519
  Receipt Date: 20210531
  Transmission Date: 20210717
  Serious: No
  Sender: FDA-Public Use
  Company Number: US-ORGANON-O2105USA000656

PATIENT
  Age: 16 Year
  Sex: Female
  Weight: 148.57 kg

DRUGS (2)
  1. NEXPLANON [Suspect]
     Active Substance: ETONOGESTREL
     Indication: MENSTRUATION IRREGULAR
  2. NEXPLANON [Suspect]
     Active Substance: ETONOGESTREL
     Indication: CONTRACEPTION
     Dosage: 68 MILLIGRAM
     Route: 059
     Dates: start: 20200203, end: 20210507

REACTIONS (7)
  - Implant site erythema [Unknown]
  - Skin erosion [Recovered/Resolved]
  - Product use in unapproved indication [Unknown]
  - Implant site irritation [Unknown]
  - Implant site abscess [Recovering/Resolving]
  - Implant site discharge [Recovering/Resolving]
  - Medical device site scab [Recovering/Resolving]

NARRATIVE: CASE EVENT DATE: 20200203
